FAERS Safety Report 6092633-4 (Version None)
Quarter: 2009Q1

REPORT INFORMATION
  Report Type: 
  Country: None (occurrence: None)
  Receive Date: 20090219
  Receipt Date: 20081209
  Transmission Date: 20090719
  Serious: No
  Sender: FDA-Public Use
  Company Number: WAES 0812USA02124

PATIENT
  Age: 62 Year
  Sex: Female

DRUGS (10)
  1. JANUVIA [Suspect]
     Dosage: PO
     Route: 048
     Dates: start: 20080813, end: 20081101
  2. AVANDIA [Concomitant]
  3. CHANTIX [Concomitant]
  4. EFFEXOR [Concomitant]
  5. LOVAZA [Concomitant]
  6. MORPHINA [Concomitant]
  7. TRICOR [Concomitant]
  8. ZOCOR [Concomitant]
  9. LISINOPRIL [Concomitant]
  10. TRAMADOL HYDROCHLROIDE [Concomitant]

REACTIONS (2)
  - DYSPNOEA [None]
  - RASH [None]
